FAERS Safety Report 5640977-X (Version None)
Quarter: 2008Q1

REPORT INFORMATION
  Report Type: 
  Country: None (occurrence: None)
  Receive Date: 20080227
  Receipt Date: 20080215
  Transmission Date: 20080703
  Serious: Yes (Hospitalization, Other)
  Sender: FDA-Public Use
  Company Number: HQWYE925621APR06

PATIENT
  Sex: Female

DRUGS (6)
  1. PREMPRO [Suspect]
  2. PROMETRIUM [Suspect]
  3. CYCRIN [Suspect]
  4. MENEST [Suspect]
  5. PREMARIN [Suspect]
  6. PROVERA [Suspect]

REACTIONS (1)
  - BREAST CANCER METASTATIC [None]
